FAERS Safety Report 5038400-1 (Version None)
Quarter: 2006Q2

REPORT INFORMATION
  Report Type: 
  Country: None (occurrence: None)
  Receive Date: 20060627
  Receipt Date: 20060627
  Transmission Date: 20061013
  Serious: No
  Sender: FDA-Public Use
  Company Number: None

PATIENT
  Sex: Female
  Weight: 83.4619 kg

DRUGS (2)
  1. OXYCONTIN [Suspect]
     Indication: INTERVERTEBRAL DISC DEGENERATION
     Dosage: 2 TABS TID PO
     Route: 048
     Dates: start: 20030101, end: 20050101
  2. OXYCONTIN [Suspect]
     Indication: PAIN
     Dosage: 2 TABS TID PO
     Route: 048
     Dates: start: 20030101, end: 20050101

REACTIONS (4)
  - DRUG EFFECT DECREASED [None]
  - NAUSEA [None]
  - THERAPEUTIC RESPONSE UNEXPECTED WITH DRUG SUBSTITUTION [None]
  - VOMITING [None]
